FAERS Safety Report 8260002-4 (Version None)
Quarter: 2012Q2

REPORT INFORMATION
  Report Type: 
  Country: None (occurrence: None)
  Receive Date: 20120404
  Receipt Date: 20120326
  Transmission Date: 20120825
  Serious: Yes (Hospitalization, Other)
  Sender: FDA-Public Use
  Company Number: US-JNJFOC-20120206019

PATIENT
  Sex: Female

DRUGS (5)
  1. ANTIDEPRESSANTS [Suspect]
     Indication: PRODUCT USED FOR UNKNOWN INDICATION
     Route: 065
  2. RISPERIDONE [Suspect]
     Route: 048
     Dates: start: 20110301, end: 20110301
  3. RISPERIDONE [Suspect]
     Indication: SCHIZOAFFECTIVE DISORDER
     Route: 048
  4. LITHIUM CARBONATE [Concomitant]
     Indication: SCHIZOAFFECTIVE DISORDER
     Route: 065
  5. RISPERIDONE [Suspect]
     Indication: SCHIZOAFFECTIVE DISORDER
     Route: 048
     Dates: end: 20110301

REACTIONS (19)
  - ADVERSE EVENT [None]
  - THERAPY CESSATION [None]
  - POST-TRAUMATIC STRESS DISORDER [None]
  - DRUG HYPERSENSITIVITY [None]
  - BEDRIDDEN [None]
  - DELUSION [None]
  - FATIGUE [None]
  - ANXIETY [None]
  - DEPRESSION [None]
  - HOSPITALISATION [None]
  - FALL [None]
  - CONDITION AGGRAVATED [None]
  - PREMENSTRUAL SYNDROME [None]
  - DIZZINESS [None]
  - PRODUCT QUALITY ISSUE [None]
  - RESPIRATORY DISORDER [None]
  - OVERDOSE [None]
  - PSYCHOTIC DISORDER [None]
  - TOXICITY TO VARIOUS AGENTS [None]
